FAERS Safety Report 24559352 (Version 1)
Quarter: 2024Q4

REPORT INFORMATION
  Report Type: Spontaneous
  Country: US (occurrence: US)
  Receive Date: 20241029
  Receipt Date: 20241029
  Transmission Date: 20250115
  Serious: No
  Sender: ELI LILLY AND COMPANY
  Company Number: US-ELI_LILLY_AND_COMPANY-US202410014556

PATIENT
  Age: 34 Year
  Sex: Female

DRUGS (2)
  1. TIRZEPATIDE [Suspect]
     Active Substance: TIRZEPATIDE
     Indication: Product used for unknown indication
     Dosage: 2.5 MG, UNKNOWN
     Route: 058
     Dates: start: 20241014
  2. YAZ [DROSPIRENONE;ETHINYLESTRADIOL] [Concomitant]
     Indication: Contraception

REACTIONS (3)
  - Product tampering [Unknown]
  - Fatigue [Unknown]
  - Constipation [Unknown]
